FAERS Safety Report 23328460 (Version 1)
Quarter: 2023Q4

REPORT INFORMATION
  Report Type: Report from Study
  Country: US (occurrence: US)
  Receive Date: 20231221
  Receipt Date: 20231221
  Transmission Date: 20240110
  Serious: Yes (Other)
  Sender: FDA-Public Use
  Company Number: US-ABBVIE-5551233

PATIENT
  Age: 23 Year
  Sex: Female

DRUGS (1)
  1. LILETTA [Suspect]
     Active Substance: LEVONORGESTREL
     Indication: Product used for unknown indication
     Dosage: TIME INTERVAL: AS NECESSARY: LAST ADMINSTRATION DATE DEC 2023
     Route: 015
     Dates: start: 20231208

REACTIONS (2)
  - Post procedural haemorrhage [Unknown]
  - Device deployment issue [Unknown]

NARRATIVE: CASE EVENT DATE: 20231208
